FAERS Safety Report 13143459 (Version 2)
Quarter: 2017Q1

REPORT INFORMATION
  Report Type: Report from Study
  Country: US (occurrence: US)
  Receive Date: 20170123
  Receipt Date: 20170212
  Transmission Date: 20170428
  Serious: Yes (Hospitalization)
  Sender: FDA-Public Use
  Company Number: PHEH2017US001988

PATIENT
  Age: 31 Year
  Sex: Male
  Weight: 84.35 kg

DRUGS (1)
  1. COSENTYX [Suspect]
     Active Substance: SECUKINUMAB
     Indication: PSORIASIS
     Dosage: 300 MG, QW
     Route: 058

REACTIONS (11)
  - Vomiting [Unknown]
  - Pyrexia [Unknown]
  - Dyspnoea [Unknown]
  - Chest pain [Unknown]
  - Hypertension [Unknown]
  - Nausea [Unknown]
  - Depression [Unknown]
  - Nasopharyngitis [Recovered/Resolved]
  - Sexually transmitted disease [Unknown]
  - Diarrhoea [Unknown]
  - Cough [Recovered/Resolved]

NARRATIVE: CASE EVENT DATE: 20170113
